FAERS Safety Report 6588060-3 (Version None)
Quarter: 2010Q1

REPORT INFORMATION
  Report Type: 
  Country: None (occurrence: None)
  Receive Date: 20100218
  Receipt Date: 20100208
  Transmission Date: 20100710
  Serious: Yes (Hospitalization, Other)
  Sender: FDA-Public Use
  Company Number: PHHY2010US07775

PATIENT
  Age: 15 Year
  Sex: Female

DRUGS (1)
  1. EXJADE [Suspect]
     Indication: SICKLE CELL ANAEMIA
     Dosage: UNK
     Route: 048

REACTIONS (6)
  - ABDOMINAL PAIN [None]
  - ACIDOSIS [None]
  - BLOOD BILIRUBIN INCREASED [None]
  - DEHYDRATION [None]
  - HEPATIC FAILURE [None]
  - RENAL FAILURE ACUTE [None]
